FAERS Safety Report 11675859 (Version 1)
Quarter: 2015Q4

REPORT INFORMATION
  Report Type: Spontaneous
  Country: US (occurrence: US)
  Receive Date: 20151028
  Receipt Date: 20151028
  Transmission Date: 20160304
  Serious: Yes (Other)
  Sender: FDA-Public Use
  Company Number: US-JNJFOC-20151013348

PATIENT
  Age: 36 Month
  Sex: Female

DRUGS (2)
  1. CHILDRENS MOTRIN [Suspect]
     Active Substance: IBUPROFEN
     Indication: PRODUCT USED FOR UNKNOWN INDICATION
     Route: 065
  2. CHILDRENS MOTRIN [Suspect]
     Active Substance: IBUPROFEN
     Route: 065

REACTIONS (3)
  - Photosensitivity reaction [Not Recovered/Not Resolved]
  - Stevens-Johnson syndrome [Recovered/Resolved with Sequelae]
  - Blindness unilateral [Not Recovered/Not Resolved]

NARRATIVE: CASE EVENT DATE: 2010
